FAERS Safety Report 4296328-9 (Version None)
Quarter: 2004Q1

REPORT INFORMATION
  Report Type: 
  Country: None (occurrence: None)
  Receive Date: 20040213
  Receipt Date: 20040213
  Transmission Date: 20041129
  Serious: Yes (Hospitalization)
  Sender: FDA-Public Use
  Company Number: None

PATIENT
  Sex: Male
  Weight: 121.1104 kg

DRUGS (12)
  1. COUMADIN [Suspect]
     Indication: ATRIAL FIBRILLATION
     Dosage: 1/2 TAB IN AM PO
     Route: 048
  2. PRAVACHOL [Concomitant]
  3. FLOMAX [Concomitant]
  4. AVAPRO [Concomitant]
  5. GLUCOVANCE [Concomitant]
  6. LASIX [Concomitant]
  7. COUMADIN [Concomitant]
  8. PROTONIX [Concomitant]
  9. POTASSIUM [Concomitant]
  10. COREG [Concomitant]
  11. DIGOXIN [Concomitant]
  12. AMARYL [Concomitant]

REACTIONS (2)
  - INTERNATIONAL NORMALISED RATIO INCREASED [None]
  - PROTHROMBIN TIME PROLONGED [None]
